FAERS Safety Report 19745379 (Version 1)
Quarter: 2021Q3

REPORT INFORMATION
  Report Type: Spontaneous
  Country: US (occurrence: US)
  Receive Date: 20210824
  Receipt Date: 20210824
  Transmission Date: 20211014
  Serious: No
  Sender: FDA-Public Use
  Company Number: None

PATIENT
  Age: 2 Year
  Sex: Female
  Weight: 11.25 kg

DRUGS (1)
  1. MIRALAX [Suspect]
     Active Substance: POLYETHYLENE GLYCOL 3350
     Indication: CONSTIPATION
     Dosage: ?          QUANTITY:2 CAPFULS;?
     Route: 048

REACTIONS (6)
  - Adverse drug reaction [None]
  - Abnormal behaviour [None]
  - Nervous system disorder [None]
  - Anger [None]
  - Dyskinesia [None]
  - Aggression [None]
